FAERS Safety Report 11071031 (Version 1)
Quarter: 2015Q2

REPORT INFORMATION
  Report Type: Spontaneous
  Country: US (occurrence: US)
  Receive Date: 20150428
  Receipt Date: 20150428
  Transmission Date: 20150821
  Serious: Yes (Hospitalization)
  Sender: FDA-Public Use
  Company Number: US-009507513-1504USA021105

PATIENT
  Sex: Female

DRUGS (2)
  1. FORADIL [Suspect]
     Active Substance: FORMOTEROL FUMARATE
     Dosage: UNK
  2. ASMANEX [Suspect]
     Active Substance: MOMETASONE FUROATE
     Dosage: UNK
     Route: 055

REACTIONS (2)
  - Nasopharyngitis [Recovered/Resolved]
  - Asthma [Unknown]
